FAERS Safety Report 25949698 (Version 2)
Quarter: 2025Q4

REPORT INFORMATION
  Report Type: Spontaneous
  Country: US (occurrence: US)
  Receive Date: 20251022
  Receipt Date: 20251106
  Transmission Date: 20260118
  Serious: Yes (Other)
  Sender: APELLIS PHARMACEUTICALS
  Company Number: US-APELLIS-2025-APL-0001993

PATIENT

DRUGS (1)
  1. EMPAVELI [Suspect]
     Active Substance: PEGCETACOPLAN
     Indication: C3 glomerulopathy
     Dosage: UNKNOWN
     Route: 065

REACTIONS (5)
  - Renal impairment [Unknown]
  - Complement factor C3 increased [Unknown]
  - Activated partial thromboplastin time prolonged [Unknown]
  - Blood creatinine increased [Unknown]
  - Proteinuria [Unknown]
